FAERS Safety Report 25790322 (Version 1)
Quarter: 2025Q3

REPORT INFORMATION
  Report Type: Spontaneous
  Country: US (occurrence: None)
  Receive Date: 20250911
  Receipt Date: 20250911
  Transmission Date: 20251021
  Serious: Yes (Death)
  Sender: ALKERMES
  Company Number: US-ALKERMES INC.-ALK-2025-002404

PATIENT
  Age: 43 Year
  Sex: Male

DRUGS (11)
  1. VIVITROL [Suspect]
     Active Substance: NALTREXONE
     Indication: Alcohol withdrawal syndrome
     Dates: start: 20250522, end: 20250826
  2. ACAMPROSATE [Concomitant]
     Active Substance: ACAMPROSATE
     Indication: Product used for unknown indication
     Route: 065
  3. CARVEDILOL [Concomitant]
     Active Substance: CARVEDILOL
     Indication: Product used for unknown indication
     Route: 065
  4. CHLORDIAZEPOXIDE [Concomitant]
     Active Substance: CHLORDIAZEPOXIDE
     Indication: Product used for unknown indication
     Route: 065
  5. FUROSEMIDE [Concomitant]
     Active Substance: FUROSEMIDE
     Indication: Product used for unknown indication
     Route: 065
  6. HYDROCHLOROTHIAZIDE [Concomitant]
     Active Substance: HYDROCHLOROTHIAZIDE
     Indication: Product used for unknown indication
     Route: 065
  7. PROPRANOLOL [Concomitant]
     Active Substance: PROPRANOLOL HYDROCHLORIDE
     Indication: Product used for unknown indication
     Route: 065
  8. SPIRONOLACTONE [Concomitant]
     Active Substance: SPIRONOLACTONE
     Indication: Product used for unknown indication
     Route: 065
  9. WARFARIN [Concomitant]
     Active Substance: WARFARIN
     Indication: Product used for unknown indication
     Route: 065
  10. WARFARIN [Concomitant]
     Active Substance: WARFARIN
     Route: 065
  11. ESCITALOPRAM [Concomitant]
     Active Substance: ESCITALOPRAM OXALATE
     Indication: Product used for unknown indication
     Route: 065

REACTIONS (1)
  - Death [Fatal]

NARRATIVE: CASE EVENT DATE: 20250826
